FAERS Safety Report 14984160 (Version 1)
Quarter: 2018Q2

REPORT INFORMATION
  Report Type: Spontaneous
  Country: US (occurrence: US)
  Receive Date: 20180517
  Receipt Date: 20180517
  Transmission Date: 20180711
  Serious: Yes (Hospitalization)
  Sender: FDA-Public Use
  Company Number: None

PATIENT
  Age: 51 Year
  Sex: Female
  Weight: 128.7 kg

DRUGS (11)
  1. MULTIVITAMIN [Concomitant]
     Active Substance: VITAMINS
  2. WELLBUTRIN XL [Suspect]
     Active Substance: BUPROPION HYDROCHLORIDE
     Indication: DEPRESSION
     Dosage: ?          QUANTITY:60 DF DOSAGE FORM;?
     Route: 048
     Dates: start: 20151130, end: 20160430
  3. LORATADINE. [Suspect]
     Active Substance: LORATADINE
     Indication: RHINITIS ALLERGIC
     Dosage: ?          QUANTITY:30 DF DOSAGE FORM;?
     Route: 048
     Dates: start: 20151130, end: 20160430
  4. AZO [Concomitant]
     Active Substance: PHENAZOPYRIDINE HYDROCHLORIDE
  5. ALBUTEROL. [Concomitant]
     Active Substance: ALBUTEROL
  6. DICLOFENAC [Concomitant]
     Active Substance: DICLOFENAC
  7. WELLBUTRIN XL [Suspect]
     Active Substance: BUPROPION HYDROCHLORIDE
     Indication: ATTENTION DEFICIT/HYPERACTIVITY DISORDER
     Dosage: ?          QUANTITY:60 DF DOSAGE FORM;?
     Route: 048
     Dates: start: 20151130, end: 20160430
  8. LEVOTHYROXINE. [Concomitant]
     Active Substance: LEVOTHYROXINE
  9. PREDNISONE. [Concomitant]
     Active Substance: PREDNISONE
  10. NITROFURANTOIN. [Concomitant]
     Active Substance: NITROFURANTOIN
  11. BREO ELLIPTA [Concomitant]
     Active Substance: FLUTICASONE FUROATE\VILANTEROL TRIFENATATE

REACTIONS (4)
  - Fall [None]
  - Nausea [None]
  - Memory impairment [None]
  - Vomiting [None]

NARRATIVE: CASE EVENT DATE: 20160318
